FAERS Safety Report 7030696-X (Version None)
Quarter: 2010Q4

REPORT INFORMATION
  Report Type: 
  Country: None (occurrence: None)
  Receive Date: 20101006
  Receipt Date: 20100924
  Transmission Date: 20110411
  Serious: Yes (Other)
  Sender: FDA-Public Use
  Company Number: JP-SANOFI-AVENTIS-2010SA058920

PATIENT
  Age: 61 Year
  Sex: Female

DRUGS (5)
  1. ELPLAT [Suspect]
     Indication: RECTAL CANCER
     Route: 042
  2. CALCIUM LEVOFOLINATE [Suspect]
     Indication: RECTAL CANCER
     Route: 042
  3. BEVACIZUMAB [Suspect]
     Indication: RECTAL CANCER
     Route: 042
  4. FLUOROURACIL [Concomitant]
     Indication: RECTAL CANCER
     Route: 040
  5. FLUOROURACIL [Concomitant]
     Route: 041

REACTIONS (1)
  - RECTAL PERFORATION [None]
